FAERS Safety Report 17127296 (Version 2)
Quarter: 2019Q4

REPORT INFORMATION
  Report Type: Spontaneous
  Country: JP (occurrence: JP)
  Receive Date: 20191209
  Receipt Date: 20191219
  Transmission Date: 20200122
  Serious: Yes (Death, Life-Threatening, Other)
  Sender: FDA-Public Use
  Company Number: JP-ASTELLAS-2019JP022829

PATIENT
  Age: 72 Year
  Sex: Male

DRUGS (6)
  1. XOSPATA [Suspect]
     Active Substance: GILTERITINIB
     Indication: ACUTE MYELOID LEUKAEMIA
     Route: 048
     Dates: start: 20191004, end: 20191031
  2. XOSPATA [Suspect]
     Active Substance: GILTERITINIB
     Route: 048
     Dates: start: 20191101, end: 20191105
  3. PREDONINE [Concomitant]
     Active Substance: PREDNISOLONE
     Dosage: 10 MG/DAY, UNKNOWN FREQ.
     Route: 048
  4. RECOMODULIN [Concomitant]
     Active Substance: THROMBOMODULIN ALFA
     Indication: DISSEMINATED INTRAVASCULAR COAGULATION
     Dosage: UNK UNK, UNKNOWN FREQ.
     Route: 065
  5. PREDONINE [Concomitant]
     Active Substance: PREDNISOLONE
     Indication: PRODUCT USED FOR UNKNOWN INDICATION
     Dosage: 40 MG/DAY, UNKNOWN FREQ.
     Route: 048
  6. XOSPATA [Suspect]
     Active Substance: GILTERITINIB
     Route: 065
     Dates: start: 20191106

REACTIONS (6)
  - Multiple organ dysfunction syndrome [Fatal]
  - Haematoma [Unknown]
  - Disseminated intravascular coagulation [Unknown]
  - Diverticulum intestinal haemorrhagic [Unknown]
  - Fall [Unknown]
  - Pyrexia [Unknown]

NARRATIVE: CASE EVENT DATE: 20191202
